FAERS Safety Report 10186424 (Version 1)
Quarter: 2014Q2

REPORT INFORMATION
  Report Type: Spontaneous
  Country: US (occurrence: US)
  Receive Date: 20140521
  Receipt Date: 20140521
  Transmission Date: 20141212
  Serious: No
  Sender: FDA-Public Use
  Company Number: US-ASTRAZENECA-2014SE01781

PATIENT
  Age: 66 Year
  Sex: Female
  Weight: 57.6 kg

DRUGS (5)
  1. BUDESONIDE [Suspect]
     Indication: COLITIS MICROSCOPIC
     Dosage: UNKNOWN UNK
     Route: 055
  2. DITROPAN [Concomitant]
     Indication: HYPERTONIC BLADDER
  3. HCTZ [Concomitant]
     Indication: BLOOD PRESSURE ABNORMAL
  4. MICARDIS [Concomitant]
     Indication: BLOOD PRESSURE ABNORMAL
  5. PRAVASTATIN [Concomitant]
     Indication: BLOOD CHOLESTEROL ABNORMAL

REACTIONS (6)
  - Dyspnoea [Unknown]
  - Adverse drug reaction [Unknown]
  - Eye pruritus [Unknown]
  - Throat irritation [Unknown]
  - Eye swelling [Unknown]
  - Oral pruritus [Unknown]
